FAERS Safety Report 22311221 (Version 1)
Quarter: 2023Q2

REPORT INFORMATION
  Report Type: Spontaneous
  Country: US (occurrence: US)
  Receive Date: 20230511
  Receipt Date: 20230511
  Transmission Date: 20230722
  Serious: No
  Sender: FDA-Public Use
  Company Number: US-BRISTOL-MYERS SQUIBB COMPANY-2023-067014

PATIENT
  Age: 94 Year
  Sex: Female

DRUGS (2)
  1. SPRYCEL [Suspect]
     Active Substance: DASATINIB
     Indication: Chronic myeloid leukaemia
     Route: 048
     Dates: start: 202210
  2. SPRYCEL [Suspect]
     Active Substance: DASATINIB
     Dates: start: 202206

REACTIONS (2)
  - Decreased appetite [Unknown]
  - Weight decreased [Unknown]
